FAERS Safety Report 5170151-5 (Version None)
Quarter: 2006Q4

REPORT INFORMATION
  Report Type: 
  Country: None (occurrence: None)
  Receive Date: 20061104
  Receipt Date: 20061120
  Transmission Date: 20070319
  Serious: Yes (Disabling)
  Sender: FDA-Public Use
  Company Number: PHRM2006FR03099

PATIENT
  Age: 37 Year
  Sex: Male

DRUGS (1)
  1. VISUDYNE [Suspect]
     Indication: MYOPIA
     Dates: start: 20050501, end: 20050501

REACTIONS (1)
  - PHOTOPHOBIA [None]
